FAERS Safety Report 8142140 (Version 2)
Quarter: 2013Q1

REPORT INFORMATION
  Report Type: Spontaneous
  Country: US (occurrence: US)
  Receive Date: 20110919
  Receipt Date: 20130211
  Transmission Date: 20140127
  Serious: Yes (Other)
  Sender: FDA-Public Use
  Company Number: US-ROCHE-802065

PATIENT
  Sex: Female
  Weight: 59.93 kg

DRUGS (4)
  1. ACCUTANE [Suspect]
     Indication: ACNE
     Route: 065
     Dates: start: 19980106, end: 199806
  2. ACCUTANE [Suspect]
     Route: 065
  3. ALESSE [Concomitant]
  4. SYNTHROID [Concomitant]

REACTIONS (8)
  - Proctitis ulcerative [Unknown]
  - Inflammatory bowel disease [Unknown]
  - Depression [Unknown]
  - Injury [Unknown]
  - Colitis ulcerative [Unknown]
  - Intestinal haemorrhage [Unknown]
  - Intestinal obstruction [Unknown]
  - Blood cholesterol increased [Unknown]
